FAERS Safety Report 12387709 (Version 6)
Quarter: 2016Q2

REPORT INFORMATION
  Report Type: Spontaneous
  Country: US (occurrence: US)
  Receive Date: 20160520
  Receipt Date: 20160620
  Transmission Date: 20160815
  Serious: Yes (Hospitalization, Other)
  Sender: FDA-Public Use
  Company Number: US-CIPLA LTD.-2016US05205

PATIENT

DRUGS (5)
  1. MEPERIDINE [Suspect]
     Active Substance: MEPERIDINE
     Indication: SEDATION
     Dosage: UNK
     Route: 065
  2. PROPOFOL. [Suspect]
     Active Substance: PROPOFOL
     Indication: SEDATION
     Dosage: UNK
     Route: 065
  3. METHYLENE BLUE. [Interacting]
     Active Substance: METHYLENE BLUE
     Dosage: 0.5 MG/KG, PER HOUR, DRIP
     Route: 042
     Dates: start: 20150318
  4. CITALOPRAM [Suspect]
     Active Substance: CITALOPRAM HYDROBROMIDE
     Indication: DEPRESSION
     Dosage: 20 MG, QD
     Route: 048
     Dates: end: 20150317
  5. METHYLENE BLUE. [Interacting]
     Active Substance: METHYLENE BLUE
     Indication: VASOPLEGIA SYNDROME
     Dosage: 2 MG/KG, BOLUS OVER 30 MINUTES
     Route: 042
     Dates: start: 20150318

REACTIONS (5)
  - Drug interaction [Unknown]
  - Serotonin syndrome [Recovered/Resolved]
  - Coagulopathy [Recovered/Resolved]
  - Vasoplegia syndrome [Recovered/Resolved]
  - Drug ineffective [Unknown]

NARRATIVE: CASE EVENT DATE: 20150318
